FAERS Safety Report 7806017-9 (Version None)
Quarter: 2011Q4

REPORT INFORMATION
  Report Type: 
  Country: None (occurrence: None)
  Receive Date: 20111011
  Receipt Date: 20110929
  Transmission Date: 20120403
  Serious: Yes (Hospitalization)
  Sender: FDA-Public Use
  Company Number: PHHY2011JP60542

PATIENT
  Sex: Female
  Weight: 52 kg

DRUGS (16)
  1. PLAVIX [Concomitant]
     Dosage: 75 MG, UNK
     Route: 048
     Dates: start: 20091116
  2. LENDORMIN [Concomitant]
     Dosage: 0.25 MG, UNK
     Route: 048
     Dates: start: 20091116
  3. DIOVAN HCT [Concomitant]
     Indication: HYPERTENSION
     Dosage: 1 DF, UNK
     Route: 048
     Dates: start: 20100318
  4. BISOPROLOL FUMARATE [Concomitant]
     Dosage: 10 MG, UNK
  5. LEVOTHYROXINE SODIUM [Concomitant]
     Dosage: 200 UG, UNK
     Route: 048
     Dates: start: 20091116
  6. FAMOTIDINE [Concomitant]
     Dosage: 40 MG, UNK
     Route: 048
     Dates: start: 20091116
  7. DIOVAN [Concomitant]
     Dosage: 80 MG, UNK
     Route: 048
  8. ALISKIREN [Suspect]
     Indication: HYPERTENSION
     Dosage: 150 MG, UNK
     Route: 048
     Dates: start: 20091225, end: 20101026
  9. DIOVAN [Concomitant]
     Indication: HYPERTENSION
     Dosage: 160 MG, UNK
     Route: 048
     Dates: start: 20091116
  10. ADALAT [Concomitant]
     Indication: HYPERTENSION
     Dosage: 10 MG, UNK
     Route: 048
     Dates: start: 20091116
  11. ADALAT [Concomitant]
     Dosage: 10 MG, UNK
  12. ARICEPT [Concomitant]
     Dosage: 5 MG, UNK
     Route: 048
     Dates: start: 20091116
  13. LEVOTHYROXINE SODIUM [Concomitant]
     Dosage: 100 UG, UNK
  14. LEVOTHYROXINE SODIUM [Concomitant]
     Dosage: 150 UG, UNK
     Route: 048
  15. BISOPROLOL FUMARATE [Concomitant]
     Indication: HYPERTENSION
     Dosage: 5 MG, UNK
     Dates: start: 20091126
  16. RINLAXER [Concomitant]
     Dosage: 750 MG, UNK
     Route: 048
     Dates: start: 20091116

REACTIONS (4)
  - FALL [None]
  - HAEMATOCRIT DECREASED [None]
  - FEMORAL NECK FRACTURE [None]
  - HAEMOGLOBIN DECREASED [None]
